FAERS Safety Report 9695429 (Version 4)
Quarter: 2016Q2

REPORT INFORMATION
  Report Type: Report from Study
  Country: ES (occurrence: ES)
  Receive Date: 20131119
  Receipt Date: 20160601
  Transmission Date: 20160815
  Serious: Yes (Death, Hospitalization, Other)
  Sender: FDA-Public Use
  Company Number: ES-SA-CLOF-1002375

PATIENT
  Age: 6 Year
  Sex: Female
  Weight: 21 kg

DRUGS (4)
  1. CLOFARABINE [Suspect]
     Active Substance: CLOFARABINE
     Indication: ACUTE LYMPHOCYTIC LEUKAEMIA
     Dosage: 40 MG/M2, QD
     Route: 042
     Dates: start: 20120528, end: 20120601
  2. CLOFARABINE [Suspect]
     Active Substance: CLOFARABINE
     Indication: ACUTE LYMPHOCYTIC LEUKAEMIA
     Dosage: 40 MG/M2, QD
     Route: 042
     Dates: start: 20120503, end: 20120507
  3. VORICONAZOLE. [Concomitant]
     Active Substance: VORICONAZOLE
     Indication: PROPHYLAXIS
     Dosage: 240 UNK, UNK
     Dates: start: 20120609, end: 20120615
  4. VORICONAZOLE. [Concomitant]
     Active Substance: VORICONAZOLE
     Indication: PROPHYLAXIS
     Dosage: 200 MCG, UNK
     Dates: start: 20120517, end: 20120522

REACTIONS (8)
  - Febrile neutropenia [Recovered/Resolved]
  - Acute graft versus host disease in liver [Recovered/Resolved]
  - Thrombocytopenia [Recovered/Resolved]
  - Cardiac tamponade [Not Recovered/Not Resolved]
  - Intracardiac mass [Not Recovered/Not Resolved]
  - Renal mass [Not Recovered/Not Resolved]
  - Disease progression [Fatal]
  - Febrile neutropenia [Recovered/Resolved]

NARRATIVE: CASE EVENT DATE: 20120517
